FAERS Safety Report 6535372-5 (Version None)
Quarter: 2009Q4

REPORT INFORMATION
  Report Type: 
  Country: None (occurrence: None)
  Receive Date: 20091228
  Receipt Date: 20090806
  Transmission Date: 20100525
  Serious: Yes (Hospitalization)
  Sender: FDA-Public Use
  Company Number: US-003255

PATIENT
  Age: 67 Year
  Sex: Male
  Weight: 80 kg

DRUGS (13)
  1. MULTIHANCE [Suspect]
     Indication: HYPOTHALAMO-PITUITARY DISORDER
     Dosage: 10ML QD INTRAVENOUS
     Route: 042
     Dates: start: 20090805, end: 20090805
  2. MULTIHANCE [Suspect]
     Indication: NUCLEAR MAGNETIC RESONANCE IMAGING
     Dosage: 10ML QD INTRAVENOUS
     Route: 042
     Dates: start: 20090805, end: 20090805
  3. NIASPAN [Concomitant]
  4. ISOSORBIDE MONONITRATE [Concomitant]
  5. METHOREXATE (METHOTREXATE) [Concomitant]
  6. FOLIC ACID [Concomitant]
  7. ZOLPIDEM [Concomitant]
  8. HUMIRA [Concomitant]
  9. ZOCOR [Concomitant]
  10. NITROGLYCERIN [Concomitant]
  11. VICODIN [Concomitant]
  12. METOPROLOL (METOPROLOL) [Concomitant]
  13. HYDROXYCHLOROQUINE SULFATE [Concomitant]

REACTIONS (1)
  - HYPERSENSITIVITY [None]
